FAERS Safety Report 10370506 (Version 1)
Quarter: 2014Q3

REPORT INFORMATION
  Report Type: Spontaneous
  Country: US (occurrence: None)
  Receive Date: 20140807
  Receipt Date: 20140807
  Transmission Date: 20150326
  Serious: Yes (Other)
  Sender: FDA-Public Use
  Company Number: None

PATIENT
  Age: 36 Year
  Sex: Female

DRUGS (1)
  1. HUMIRA [Suspect]
     Active Substance: ADALIMUMAB
     Indication: CROHN^S DISEASE
     Route: 058
     Dates: start: 20140604, end: 20140801

REACTIONS (4)
  - Asthenia [None]
  - Hyperpyrexia [None]
  - Fatigue [None]
  - Activities of daily living impaired [None]

NARRATIVE: CASE EVENT DATE: 20140806
